FAERS Safety Report 16864967 (Version 1)
Quarter: 2019Q3

REPORT INFORMATION
  Report Type: Report from Study
  Country: KR (occurrence: KR)
  Receive Date: 20190929
  Receipt Date: 20190929
  Transmission Date: 20191005
  Serious: Yes (Death)
  Sender: FDA-Public Use
  Company Number: KR-CELLTRION INC.-2019KR025160

PATIENT

DRUGS (12)
  1. GRASIN [Concomitant]
     Indication: NEUTROPHIL COUNT DECREASED
     Dosage: 300 MICROGRAM, QD
     Route: 042
     Dates: start: 20190729, end: 20190801
  2. NEXIUM I.V. [Concomitant]
     Active Substance: ESOMEPRAZOLE SODIUM
     Indication: GASTROINTESTINAL DISORDER PROPHYLAXIS
     Dosage: 40 MG, QD
     Route: 048
     Dates: start: 20190724, end: 20190802
  3. SMECTA [Concomitant]
     Active Substance: MONTMORILLONITE
     Indication: DIARRHOEA
     Dosage: 20 ML, PRN
     Route: 048
     Dates: start: 20190730, end: 20190803
  4. PERTUZUMAB. [Concomitant]
     Active Substance: PERTUZUMAB
     Indication: HER-2 POSITIVE BREAST CANCER
     Dosage: 840 MG, QD
     Route: 042
     Dates: start: 20190724, end: 20190821
  5. DEXAMETHASONE. [Concomitant]
     Active Substance: DEXAMETHASONE
     Indication: BACK PAIN
     Dosage: 4 MG, QD
     Route: 042
     Dates: start: 20190722, end: 20190731
  6. TARGIN [Concomitant]
     Active Substance: NALOXONE HYDROCHLORIDE\OXYCODONE HYDROCHLORIDE
     Indication: PAIN PROPHYLAXIS
     Dosage: 10 MG, BID
     Route: 048
     Dates: start: 20190710
  7. HERZUMA [Suspect]
     Active Substance: TRASTUZUMAB-PKRB
     Indication: HER-2 POSITIVE BREAST CANCER
     Dosage: 390 MG, EVERY 3 WEEKS
     Route: 042
     Dates: start: 20190724, end: 20190821
  8. LYRICA [Concomitant]
     Active Substance: PREGABALIN
     Indication: PAIN PROPHYLAXIS
     Dosage: 75 MG, QD
     Route: 048
     Dates: start: 20190710
  9. NAXEN-F [Concomitant]
     Indication: PAIN PROPHYLAXIS
     Dosage: 500 MG, BID
     Route: 048
     Dates: start: 20190711
  10. APETROL ES [Concomitant]
     Indication: DECREASED APPETITE
     Dosage: 5.2 ML, QD
     Route: 048
     Dates: start: 20190807, end: 20190813
  11. IRCODON [Concomitant]
     Active Substance: OXYCODONE HYDROCHLORIDE
     Indication: PAIN PROPHYLAXIS
     Dosage: 5 MG, PRN
     Route: 048
     Dates: start: 20190814
  12. DOCETAXEL. [Concomitant]
     Active Substance: DOCETAXEL
     Indication: HER-2 POSITIVE BREAST CANCER
     Dosage: 110 MG, QD
     Route: 042
     Dates: start: 20190724, end: 20190821

REACTIONS (1)
  - Neutropenia [Fatal]

NARRATIVE: CASE EVENT DATE: 20190826
